FAERS Safety Report 19786719 (Version 1)
Quarter: 2021Q3

REPORT INFORMATION
  Report Type: Spontaneous
  Country: CA (occurrence: CA)
  Receive Date: 20210903
  Receipt Date: 20210903
  Transmission Date: 20211014
  Serious: Yes (Other)
  Sender: FDA-Public Use
  Company Number: CA-PFIZER INC-202101096866

PATIENT
  Age: 35 Year
  Sex: Male

DRUGS (3)
  1. SALOFALK [MESALAZINE] [Concomitant]
     Active Substance: MESALAMINE
     Dosage: 4 G, DAILY
  2. PREDNISONE. [Concomitant]
     Active Substance: PREDNISONE
  3. XELJANZ [Suspect]
     Active Substance: TOFACITINIB CITRATE
     Indication: COLITIS ULCERATIVE
     Dosage: 10 MG, 2X/DAY, INDUCTION DOSE
     Route: 048
     Dates: start: 20210713

REACTIONS (1)
  - Clostridium difficile infection [Unknown]
